FAERS Safety Report 7030766-6 (Version None)
Quarter: 2010Q4

REPORT INFORMATION
  Report Type: 
  Country: None (occurrence: None)
  Receive Date: 20101006
  Receipt Date: 20100927
  Transmission Date: 20110411
  Serious: No
  Sender: FDA-Public Use
  Company Number: US-PFIZER INC-2009164611

PATIENT
  Sex: Male
  Weight: 90.7 kg

DRUGS (5)
  1. XANAX [Suspect]
     Dosage: UNK
  2. ALPRAZOLAM [Suspect]
     Indication: TREMOR
     Dosage: 1 MG, 4X/DAY
     Route: 048
     Dates: start: 20060101
  3. NEURONTIN [Concomitant]
     Indication: NEURALGIA
     Dosage: 30 MG, 3X/DAY
     Dates: start: 20040801
  4. SEROQUEL [Concomitant]
     Indication: SOMNOLENCE
     Dosage: 400 MG, DAILY
     Dates: start: 20000801
  5. COPAXONE [Concomitant]
     Indication: MULTIPLE SCLEROSIS
     Dosage: 40 MG, UNK
     Dates: start: 20040801

REACTIONS (9)
  - ANXIETY [None]
  - DRUG INEFFECTIVE [None]
  - FATIGUE [None]
  - FEELING JITTERY [None]
  - HEADACHE [None]
  - INSOMNIA [None]
  - NAUSEA [None]
  - RESTLESSNESS [None]
  - TREMOR [None]
